FAERS Safety Report 6030596-8 (Version None)
Quarter: 2008Q4

REPORT INFORMATION
  Report Type: 
  Country: None (occurrence: None)
  Receive Date: 20081222
  Receipt Date: 20080915
  Transmission Date: 20090506
  Serious: No
  Sender: FDA-Public Use
  Company Number: US-WYE-H06011408

PATIENT
  Age: 65 Year
  Sex: Female

DRUGS (5)
  1. PRISTIQ [Suspect]
     Indication: POLYMYALGIA RHEUMATICA
     Dosage: 50 MG 1X PER 1 DAY, ORAL
     Route: 048
     Dates: start: 20080909
  2. OXYCONTIN [Suspect]
     Indication: POLYMYALGIA RHEUMATICA
     Dosage: 20 MG 1X PER 1 DAY
  3. OXYCODONE AND ACETAMINOPHEN [Concomitant]
  4. PREDNISONE TAB [Concomitant]
  5. SYNTHROID [Concomitant]

REACTIONS (2)
  - ASTHENIA [None]
  - DRUG INTERACTION [None]
